FAERS Safety Report 21483437 (Version 1)
Quarter: 2022Q4

REPORT INFORMATION
  Report Type: Spontaneous
  Country: US (occurrence: US)
  Receive Date: 20221020
  Receipt Date: 20221020
  Transmission Date: 20230113
  Serious: No
  Sender: FDA-Public Use
  Company Number: US-CELLTRION INC.-2022US003415

PATIENT

DRUGS (3)
  1. INFLECTRA [Suspect]
     Active Substance: INFLIXIMAB-DYYB
     Indication: Product used for unknown indication
     Dosage: 291 100 MG/20 ML; (BLANK) MG OF INFLECTRA (FREQUENCY: AT WEEK 0,2,6 THEN EVERY 8 WKS, QUANTITY 3, RE
  2. INFLECTRA [Suspect]
     Active Substance: INFLIXIMAB-DYYB
     Dosage: UNK, CYCLIC (INJECT (BLANK) MG OF INFLECTRA AT WEEK 0,2,6 THEN EVERY 8 WEEKS)
     Route: 065
  3. RITUXIMAB [Concomitant]
     Active Substance: RITUXIMAB
     Dosage: SINGLE DOSE VIAL: 3

REACTIONS (1)
  - Product prescribing error [Unknown]
